FAERS Safety Report 5368865-7 (Version None)
Quarter: 2007Q2

REPORT INFORMATION
  Report Type: 
  Country: None (occurrence: None)
  Receive Date: 20070625
  Receipt Date: 20061129
  Transmission Date: 20071010
  Serious: No
  Sender: FDA-Public Use
  Company Number: US-ASTRAZENECA-2006UW22124

PATIENT
  Age: 69 Year
  Sex: Female
  Weight: 71.8 kg

DRUGS (5)
  1. CRESTOR [Suspect]
     Indication: BLOOD CHOLESTEROL INCREASED
     Route: 048
     Dates: start: 20061025, end: 20061031
  2. SYNTHROID [Concomitant]
     Indication: HYPOTHYROIDISM
     Route: 048
  3. RANITIDINE [Concomitant]
  4. XANAX [Concomitant]
     Indication: ANXIETY
     Route: 048
  5. ZOLOFT [Concomitant]
     Indication: ANXIETY
     Route: 048

REACTIONS (4)
  - BURNING SENSATION [None]
  - GLOSSODYNIA [None]
  - LIP SWELLING [None]
  - SWOLLEN TONGUE [None]
